FAERS Safety Report 16754222 (Version 1)
Quarter: 2019Q3

REPORT INFORMATION
  Report Type: Spontaneous
  Country: US (occurrence: US)
  Receive Date: 20190829
  Receipt Date: 20190829
  Transmission Date: 20191005
  Serious: No
  Sender: FDA-Public Use
  Company Number: US-STRIDES ARCOLAB LIMITED-2018SP009059

PATIENT

DRUGS (3)
  1. VISMODEGIB. [Concomitant]
     Active Substance: VISMODEGIB
     Indication: BASAL CELL CARCINOMA
     Dosage: 150 MG, PER DAY
     Route: 065
  2. AMLODIPINE [Suspect]
     Active Substance: AMLODIPINE BESYLATE
     Indication: MUSCLE SPASMS
  3. AMLODIPINE [Suspect]
     Active Substance: AMLODIPINE BESYLATE
     Indication: BASAL CELL NAEVUS SYNDROME
     Dosage: 10 MG, PER DAY
     Route: 065

REACTIONS (2)
  - Oedema peripheral [Unknown]
  - Off label use [Unknown]
